FAERS Safety Report 4755785-1 (Version None)
Quarter: 2005Q3

REPORT INFORMATION
  Report Type: 
  Country: None (occurrence: None)
  Receive Date: 20050830
  Receipt Date: 20050727
  Transmission Date: 20060218
  Serious: No
  Sender: FDA-Public Use
  Company Number: US-BRISTOL-MYERS SQUIBB COMPANY-13053723

PATIENT
  Sex: Male
  Weight: 105 kg

DRUGS (5)
  1. ABILIFY [Suspect]
     Indication: SCHIZOPHRENIA
     Route: 048
  2. ABILIFY [Suspect]
     Indication: BIPOLAR DISORDER
     Route: 048
  3. LIPITOR [Concomitant]
  4. METFORMIN HCL [Concomitant]
  5. ASPIRIN [Concomitant]

REACTIONS (3)
  - ABDOMINAL DISTENSION [None]
  - HYPERTROPHY BREAST [None]
  - INSOMNIA [None]
